FAERS Safety Report 10365292 (Version 1)
Quarter: 2014Q3

REPORT INFORMATION
  Report Type: Spontaneous
  Country: US (occurrence: None)
  Receive Date: 20140804
  Receipt Date: 20140804
  Transmission Date: 20150326
  Serious: Yes (Life-Threatening)
  Sender: FDA-Public Use
  Company Number: AUR-APL-2014-08103

PATIENT
  Age: 55 Year
  Sex: Male

DRUGS (6)
  1. FENTANYL (FENTANYL) [Suspect]
     Active Substance: FENTANYL
     Indication: PRODUCT USED FOR UNKNOWN INDICATION
  2. TRAZODONE [Suspect]
     Active Substance: TRAZODONE HYDROCHLORIDE
     Indication: PRODUCT USED FOR UNKNOWN INDICATION
  3. PIPERACILLINA/TAZOBACTAM (PIPERACILLIN SODIUM, TAZOBACTAM SODIUM) [Concomitant]
  4. ESCITALOPRAM 20 MG (ESCITALOPRAM) UNKNOWN, 20MG [Suspect]
     Active Substance: ESCITALOPRAM OXALATE
     Indication: PRODUCT USED FOR UNKNOWN INDICATION
  5. LINEZOLID (LINEZOLID) [Suspect]
     Active Substance: LINEZOLID
     Indication: PRODUCT USED FOR UNKNOWN INDICATION
  6. VANCOMYCIN (VANCOMYCIN) [Concomitant]
     Active Substance: VANCOMYCIN

REACTIONS (8)
  - Platelet dysfunction [None]
  - Enterococcal infection [None]
  - Drug interaction [None]
  - Serotonin syndrome [None]
  - Cerebral haemorrhage [None]
  - Small intestinal obstruction [None]
  - Blood culture positive [None]
  - Unresponsive to stimuli [None]
